FAERS Safety Report 7056416-0 (Version None)
Quarter: 2010Q4

REPORT INFORMATION
  Report Type: 
  Country: None (occurrence: None)
  Receive Date: 20101018
  Receipt Date: 20101006
  Transmission Date: 20110411
  Serious: Yes (Other)
  Sender: FDA-Public Use
  Company Number: 2010SP053509

PATIENT
  Sex: Male
  Weight: 2.6 kg

DRUGS (5)
  1. CEREZETTE (DESOGESTREL /00754001/) [Suspect]
     Dosage: TRPL
     Route: 064
  2. RIFATER [Suspect]
     Dosage: TRPL
     Route: 064
  3. MYAMBUTOL [Suspect]
     Dosage: TRPL
     Route: 064
  4. BENADON (PYRIDOXINE HYDROCHLORIDE) [Suspect]
     Dosage: TRPL
     Route: 064
  5. RIFANAH (RIFINAH) [Suspect]
     Dosage: TRPL
     Route: 064

REACTIONS (3)
  - CAESAREAN SECTION [None]
  - FOETAL HEART RATE ABNORMAL [None]
  - MATERNAL DRUGS AFFECTING FOETUS [None]
